FAERS Safety Report 7054317-5 (Version None)
Quarter: 2010Q4

REPORT INFORMATION
  Report Type: 
  Country: None (occurrence: None)
  Receive Date: 20101020
  Receipt Date: 20101008
  Transmission Date: 20110411
  Serious: Yes (Other)
  Sender: FDA-Public Use
  Company Number: JP-PFIZER INC-2010126966

PATIENT
  Age: 70 Year
  Sex: Female

DRUGS (5)
  1. ZITHROMAC [Suspect]
     Indication: PHARYNGITIS
     Dosage: 500 MG, UNK
     Route: 048
     Dates: start: 20101006, end: 20101006
  2. ZITHROMAC [Suspect]
     Indication: LARYNGITIS
  3. SALICYLIC ACID [Concomitant]
  4. HUSTAZOL [Concomitant]
  5. MUCOSTA [Concomitant]

REACTIONS (1)
  - CHROMATURIA [None]
